FAERS Safety Report 17984377 (Version 1)
Quarter: 2020Q3

REPORT INFORMATION
  Report Type: Spontaneous
  Country: AR (occurrence: AR)
  Receive Date: 20200706
  Receipt Date: 20200706
  Transmission Date: 20201103
  Serious: Yes (Hospitalization, Other)
  Sender: FDA-Public Use
  Company Number: AR-PFIZER INC-2020253535

PATIENT
  Age: 68 Year
  Sex: Female

DRUGS (1)
  1. XALKORI [Suspect]
     Active Substance: CRIZOTINIB
     Indication: NON-SMALL CELL LUNG CANCER METASTATIC
     Dosage: 250 MG, 2X/DAY
     Route: 048
     Dates: start: 20200418

REACTIONS (4)
  - Abdominal distension [Unknown]
  - Weight decreased [Unknown]
  - Neoplasm progression [Unknown]
  - Vomiting [Unknown]

NARRATIVE: CASE EVENT DATE: 202004
